FAERS Safety Report 8257374-3 (Version None)
Quarter: 2012Q2

REPORT INFORMATION
  Report Type: 
  Country: None (occurrence: None)
  Receive Date: 20120403
  Receipt Date: 20120327
  Transmission Date: 20120825
  Serious: Yes (Hospitalization)
  Sender: FDA-Public Use
  Company Number: US-COVIDIEN/TYCO HEALTHCARE/MALLINCKRODT-T201201343

PATIENT
  Age: 79 Year
  Sex: Male

DRUGS (1)
  1. EXALGO [Suspect]

REACTIONS (1)
  - SYNCOPE [None]
